FAERS Safety Report 9191306 (Version 2)
Quarter: 2013Q2

REPORT INFORMATION
  Report Type: Spontaneous
  Country: ES (occurrence: ES)
  Receive Date: 20130326
  Receipt Date: 20130621
  Transmission Date: 20140414
  Serious: Yes (Hospitalization, Other)
  Sender: FDA-Public Use
  Company Number: ES-ROCHE-1206241

PATIENT
  Age: 44 Year
  Sex: Female

DRUGS (6)
  1. XOLAIR [Suspect]
     Indication: ASTHMA
     Route: 058
     Dates: start: 201203
  2. XOLAIR [Suspect]
     Route: 058
     Dates: start: 201204, end: 201204
  3. XOLAIR [Suspect]
     Route: 065
     Dates: start: 201210
  4. XOLAIR [Suspect]
     Route: 065
     Dates: start: 20130116
  5. XOLAIR [Suspect]
     Route: 065
     Dates: start: 201302, end: 201302
  6. XOLAIR [Suspect]
     Route: 065
     Dates: start: 20130303, end: 20130303

REACTIONS (9)
  - Acute myocardial infarction [Unknown]
  - Arteriosclerosis [Unknown]
  - Coronary artery occlusion [Unknown]
  - Myalgia [Unknown]
  - Back pain [Unknown]
  - Asthenia [Unknown]
  - Vomiting [Unknown]
  - Local swelling [Unknown]
  - Dizziness [Unknown]
